FAERS Safety Report 7067244 (Version 5)
Quarter: 2014Q3

REPORT INFORMATION
  Report Type: Spontaneous
  Country: DK (occurrence: DK)
  Receive Date: 20090730
  Receipt Date: 20140729
  Transmission Date: 20150326
  Serious: Yes (Hospitalization)
  Sender: FDA-Public Use
  Company Number: DK-RANBAXY-2009RR-25812

PATIENT
  Age: 60 Year
  Sex: Female
  Weight: 60 kg

DRUGS (6)
  1. FERRO DURETTER [Concomitant]
     Indication: PRODUCT USED FOR UNKNOWN INDICATION
     Dosage: 100 MG, QD
     Route: 048
     Dates: start: 20070427
  2. RAMIPRIL. [Concomitant]
     Active Substance: RAMIPRIL
     Indication: HYPERTENSION
     Dosage: 5 MG, QD
     Route: 065
     Dates: start: 20070727
  3. IOMERON [Suspect]
     Active Substance: IOMEPROL
     Indication: SCAN WITH CONTRAST
     Dosage: 85 ML, UNK
     Route: 042
     Dates: start: 20090422, end: 20090508
  4. SIMVASTATIN. [Suspect]
     Active Substance: SIMVASTATIN
     Indication: HYPERCHOLESTEROLAEMIA
     Dosage: 40 MG, QD
     Route: 048
     Dates: start: 20050101, end: 20090508
  5. FURIX RETARD [Concomitant]
     Active Substance: FUROSEMIDE
     Indication: FLUID OVERLOAD
     Dosage: 60 MG, QD
     Route: 048
     Dates: start: 20030101
  6. ETALPHA [Concomitant]
     Active Substance: ALFACALCIDOL
     Indication: VITAMIN D DEFICIENCY
     Dosage: 0.5 MG, TID
     Route: 048
     Dates: start: 20080808

REACTIONS (3)
  - Rhabdomyolysis [Recovered/Resolved]
  - Dizziness [Unknown]
  - Drug interaction [Recovered/Resolved]

NARRATIVE: CASE EVENT DATE: 20090423
